FAERS Safety Report 7387542-4 (Version None)
Quarter: 2011Q1

REPORT INFORMATION
  Report Type: 
  Country: None (occurrence: None)
  Receive Date: 20110331
  Receipt Date: 20110324
  Transmission Date: 20110831
  Serious: Yes (Hospitalization)
  Sender: FDA-Public Use
  Company Number: AU-PFIZER INC-2011063663

PATIENT
  Age: 40 Year
  Sex: Male

DRUGS (1)
  1. IBUPROFEN [Suspect]
     Indication: BACK PAIN
     Dosage: 1.4-2.0 G/DAY

REACTIONS (2)
  - RENAL TUBULAR ACIDOSIS [None]
  - GASTRIC ULCER [None]
